FAERS Safety Report 25990265 (Version 1)
Quarter: 2025Q4

REPORT INFORMATION
  Report Type: Spontaneous
  Country: US (occurrence: None)
  Receive Date: 20251103
  Receipt Date: 20251103
  Transmission Date: 20260118
  Serious: Yes (unspecified)
  Sender: FDA-CTU
  Company Number: None

PATIENT
  Age: 55 Year
  Sex: Male
  Weight: 74.25 kg

DRUGS (10)
  1. JOURNAVX [Suspect]
     Active Substance: SUZETRIGINE
     Indication: Arthralgia
     Dates: start: 20251020, end: 20251030
  2. Vimpat 200 mg tid [Concomitant]
  3. Briviact 100 mg bid [Concomitant]
  4. Clobazam 15 mg am and pm [Concomitant]
  5. Lamictal 250 mg pm [Concomitant]
  6. Effient am [Concomitant]
  7. baby asa am [Concomitant]
  8. Imdur 30 mg am [Concomitant]
  9. atorvastatin 20mg pm [Concomitant]
  10. VITAMINS [Concomitant]
     Active Substance: VITAMINS

REACTIONS (2)
  - Epilepsy [None]
  - Status epilepticus [None]

NARRATIVE: CASE EVENT DATE: 20251027
